FAERS Safety Report 7490299-X (Version None)
Quarter: 2011Q2

REPORT INFORMATION
  Report Type: 
  Country: None (occurrence: None)
  Receive Date: 20110519
  Receipt Date: 20101022
  Transmission Date: 20111010
  Serious: No
  Sender: FDA-Public Use
  Company Number: US-BRISTOL-MYERS SQUIBB COMPANY-15350275

PATIENT
  Age: 27 Year
  Sex: Female

DRUGS (1)
  1. ENTECAVIR [Suspect]

REACTIONS (2)
  - RASH MACULO-PAPULAR [None]
  - PERIORBITAL OEDEMA [None]
